FAERS Safety Report 10512075 (Version 1)
Quarter: 2014Q4

REPORT INFORMATION
  Report Type: Spontaneous
  Country: US (occurrence: US)
  Receive Date: 20141010
  Receipt Date: 20141010
  Transmission Date: 20150528
  Serious: No
  Sender: FDA-Public Use
  Company Number: US-TARO-2013P1021933

PATIENT
  Sex: Female
  Weight: 40.82 kg

DRUGS (8)
  1. DUONEB [Concomitant]
     Active Substance: ALBUTEROL SULFATE\IPRATROPIUM BROMIDE
     Dosage: PRN
  2. LIDOCAINE OINTMENT USP 5% (FLAVORED) [Suspect]
     Active Substance: LIDOCAINE
     Indication: PAIN
     Route: 061
     Dates: start: 20130814, end: 2013
  3. TARKA 2-180 [Concomitant]
     Dosage: QD
  4. COMBIVENT PUFFER [Concomitant]
     Dosage: PRN
  5. LIDOCAINE OINTMENT USP 5% (FLAVORED) [Suspect]
     Active Substance: LIDOCAINE
     Route: 061
     Dates: start: 20130814, end: 2013
  6. SYNTHROID [Concomitant]
     Active Substance: LEVOTHYROXINE SODIUM
     Dosage: QD
  7. PREMARIN [Concomitant]
     Active Substance: ESTROGENS, CONJUGATED
     Dosage: QD
  8. AMBIEN [Concomitant]
     Active Substance: ZOLPIDEM TARTRATE
     Dosage: PRN

REACTIONS (2)
  - Drug ineffective [Not Recovered/Not Resolved]
  - Product quality issue [Unknown]

NARRATIVE: CASE EVENT DATE: 2013
